FAERS Safety Report 13352040 (Version 1)
Quarter: 2017Q1

REPORT INFORMATION
  Report Type: Spontaneous
  Country: US (occurrence: US)
  Receive Date: 20170320
  Receipt Date: 20170320
  Transmission Date: 20170429
  Serious: No
  Sender: FDA-Public Use
  Company Number: US-SA-2016SA070646

PATIENT
  Sex: Female

DRUGS (1)
  1. NASACORT ALLERGY 24HR [Suspect]
     Active Substance: TRIAMCINOLONE ACETONIDE
     Dosage: START: 1 YEAR AGO.
     Route: 065

REACTIONS (4)
  - Anosmia [Unknown]
  - Nasal dryness [Unknown]
  - Nasopharyngitis [Unknown]
  - Fatigue [Unknown]
